FAERS Safety Report 12484193 (Version 1)
Quarter: 2016Q2

REPORT INFORMATION
  Report Type: Spontaneous
  Country: US (occurrence: US)
  Receive Date: 20160621
  Receipt Date: 20160621
  Transmission Date: 20160815
  Serious: No
  Sender: FDA-Public Use
  Company Number: US-MISSION PHARMACAL COMPANY-1054111

PATIENT
  Age: 54 Year
  Sex: Female

DRUGS (1)
  1. THIOLA [Suspect]
     Active Substance: TIOPRONIN
     Indication: AMINO ACID METABOLISM DISORDER
     Route: 065
     Dates: start: 20160109

REACTIONS (2)
  - Fatigue [Unknown]
  - Headache [Recovered/Resolved]
